FAERS Safety Report 8225828 (Version 7)
Quarter: 2013Q1

REPORT INFORMATION
  Report Type: Spontaneous
  Country: DK (occurrence: DK)
  Receive Date: 20111103
  Receipt Date: 20130321
  Transmission Date: 20140127
  Serious: Yes (Death, Hospitalization, Other)
  Sender: FDA-Public Use
  Company Number: PHHY2011DK96141

PATIENT
  Age: 72 Year
  Sex: Female

DRUGS (12)
  1. MIRTAZAPINE [Suspect]
     Indication: SCHIZOAFFECTIVE DISORDER
     Dosage: 30 MG, QD
     Route: 048
     Dates: start: 2011, end: 20111023
  2. ZELDOX [Suspect]
     Indication: SCHIZOAFFECTIVE DISORDER
     Dosage: 40 MG, BID
     Route: 048
     Dates: end: 20111023
  3. ZELDOX [Suspect]
     Dosage: 40 MG, BID
     Route: 048
     Dates: end: 20111023
  4. CIPRALEX [Suspect]
     Indication: SCHIZOAFFECTIVE DISORDER
     Dosage: 30 MG, QD (DAILY DOSE OF 1 TABLET IN THE MORNING AND 1.5 TABLET IN THE EVENING)
     Route: 048
     Dates: end: 20111023
  5. CIPRALEX [Suspect]
     Dosage: 30 MG, QD
     Route: 048
     Dates: end: 20111023
  6. LITAREX [Suspect]
     Indication: SCHIZOAFFECTIVE DISORDER
     Dosage: 1 DF (IN THE MORNING)
     Route: 048
     Dates: end: 20111023
  7. LITAREX [Suspect]
     Dosage: 1.5 DF (IN THE EVENING)
     Route: 048
     Dates: end: 20111023
  8. LITAREX [Suspect]
     Route: 048
     Dates: end: 20111023
  9. ALPRAZOLAM [Concomitant]
     Dosage: 0.5 MG, QD
     Dates: end: 20111022
  10. ALPRAZOLAM [Concomitant]
     Dosage: 0.5 MG, QD
     Dates: end: 20111022
  11. CENTYL MED KALIUMKLORID [Concomitant]
     Dosage: 1 DF, QD
     Dates: end: 20111023
  12. FERRO DURETTER [Concomitant]
     Dosage: 100 MG QD
     Dates: end: 20111023

REACTIONS (18)
  - Neuroleptic malignant syndrome [Fatal]
  - Rhabdomyolysis [Fatal]
  - Renal failure [Fatal]
  - Lactic acidosis [Fatal]
  - Hepatic cirrhosis [Fatal]
  - Lacunar infarction [Fatal]
  - Confusional state [Fatal]
  - Hyperventilation [Fatal]
  - Pyrexia [Fatal]
  - Organ failure [Fatal]
  - Myocardial infarction [Unknown]
  - Cardiac hypertrophy [Unknown]
  - Humerus fracture [Not Recovered/Not Resolved]
  - Urinary tract infection [Unknown]
  - Fall [Recovered/Resolved]
  - Constipation [Unknown]
  - Hypertension [Not Recovered/Not Resolved]
  - Dyspnoea [Not Recovered/Not Resolved]
